FAERS Safety Report 25396957 (Version 1)
Quarter: 2025Q2

REPORT INFORMATION
  Report Type: Spontaneous
  Country: US (occurrence: US)
  Receive Date: 20250604
  Receipt Date: 20250604
  Transmission Date: 20250716
  Serious: No
  Sender: FOUNDATION CONSUMER HEALTHCARE
  Company Number: US-FOUNDATIONCONSUMERHC-2024-US-056849

PATIENT
  Age: 25 Year
  Sex: Female
  Weight: 54.43 kg

DRUGS (3)
  1. PLAN B ONE-STEP [Suspect]
     Active Substance: LEVONORGESTREL
     Indication: Post coital contraception
     Route: 048
     Dates: start: 20240928, end: 20240928
  2. QUETIAPINE [Concomitant]
     Active Substance: QUETIAPINE
  3. NEXPLANON [Concomitant]
     Active Substance: ETONOGESTREL

REACTIONS (4)
  - Abdominal pain upper [Not Recovered/Not Resolved]
  - Breast tenderness [Not Recovered/Not Resolved]
  - Abdominal pain [Recovered/Resolved]
  - Vaginal haemorrhage [Recovered/Resolved]

NARRATIVE: CASE EVENT DATE: 20241001
